FAERS Safety Report 14155194 (Version 1)
Quarter: 2017Q4

REPORT INFORMATION
  Report Type: Spontaneous
  Country: MN (occurrence: MN)
  Receive Date: 20171103
  Receipt Date: 20171103
  Transmission Date: 20180321
  Serious: Yes (Other)
  Sender: FDA-Public Use
  Company Number: MN-CASPER PHARMA, LLC-CAS201710-000038

PATIENT
  Age: 28 Year
  Sex: Female

DRUGS (4)
  1. AZATHIOPRINE. [Suspect]
     Active Substance: AZATHIOPRINE
     Indication: RENAL TRANSPLANT
  2. RITUXIMAB. [Concomitant]
     Active Substance: RITUXIMAB
  3. PLASMAPHERESIS [Concomitant]
     Active Substance: UNSPECIFIED INGREDIENT
  4. IMMUNOGLOBULIN (IVIG) [Concomitant]
     Active Substance: HUMAN IMMUNOGLOBULIN G
     Route: 042

REACTIONS (1)
  - Ruptured ectopic pregnancy [Unknown]
